FAERS Safety Report 8389011-1 (Version None)
Quarter: 2012Q2

REPORT INFORMATION
  Report Type: 
  Country: None (occurrence: None)
  Receive Date: 20120528
  Receipt Date: 20120517
  Transmission Date: 20120825
  Serious: No
  Sender: FDA-Public Use
  Company Number: US-PFIZER INC-2012120331

PATIENT
  Sex: Female
  Weight: 61.224 kg

DRUGS (4)
  1. DEPO-ESTRADIOL [Suspect]
     Indication: HORMONE THERAPY
     Dosage: 1 ML, EVERY OTHER WEEK
  2. CLONIDINE HYDROCHLORIDE [Concomitant]
     Indication: HYPERTENSION
     Dosage: 0.1 MG, DAILY
  3. ATENOLOL [Concomitant]
     Indication: HYPERTENSION
     Dosage: 100 MG, DAILY
  4. KENALOG [Suspect]
     Indication: ARTHRITIS
     Dosage: UNK, (NEARLY FOUR TIMES IN A YEAR)

REACTIONS (4)
  - MALAISE [None]
  - HYPERHIDROSIS [None]
  - FEELING HOT [None]
  - POOR QUALITY DRUG ADMINISTERED [None]
